FAERS Safety Report 10269253 (Version 2)
Quarter: 2014Q3

REPORT INFORMATION
  Report Type: Spontaneous
  Country: CL (occurrence: CL)
  Receive Date: 20140701
  Receipt Date: 20140701
  Transmission Date: 20150326
  Serious: Yes (Hospitalization)
  Sender: FDA-Public Use
  Company Number: CL-BIOMARINAP-CL-2014-103260

PATIENT
  Age: 8 Year
  Sex: Male

DRUGS (1)
  1. NAGLAZYME [Suspect]
     Active Substance: GALSULFASE
     Indication: PRODUCT USED FOR UNKNOWN INDICATION
     Dosage: 20 MG, QW
     Route: 042
     Dates: start: 20130826

REACTIONS (8)
  - Pneumonia [Unknown]
  - Bronchitis [Unknown]
  - Respiratory distress [Unknown]
  - Tachypnoea [Unknown]
  - Cough [Unknown]
  - Anxiety [Unknown]
  - Nasal congestion [Unknown]
  - Cyanosis [Unknown]
